FAERS Safety Report 6094706-9 (Version None)
Quarter: 2009Q1

REPORT INFORMATION
  Report Type: 
  Country: None (occurrence: None)
  Receive Date: 20090224
  Receipt Date: 20090216
  Transmission Date: 20090719
  Serious: Yes (Hospitalization)
  Sender: FDA-Public Use
  Company Number: 6049044

PATIENT
  Age: 66 Year
  Sex: Male

DRUGS (4)
  1. CARDESIEL [Suspect]
     Indication: DRUG USE FOR UNKNOWN INDICATION
     Dosage: 1 DOSAGE FORMS (1 DOSAGE FORMS, 1 IN 1 D) ORAL
     Route: 048
     Dates: start: 20081118, end: 20081215
  2. PREVISCAN (20 MG, TABLET)(FLUINDIONE) [Suspect]
     Indication: DRUG USE FOR UNKNOWN INDICATION
     Dosage: 1 DOSAGE FORMS 1 DOSAGE FORMS, 1 IN 1 D) ,  ORAL
     Route: 048
     Dates: start: 20081118, end: 20081215
  3. CORDARONE [Suspect]
     Indication: DRUG USE FOR UNKNOWN INDICATION
     Dosage: 1 DOSAGE FORMS (1 DOSAGE FORMAL IN 1 D), ORAL
     Route: 048
     Dates: start: 20081118, end: 20081215
  4. ALLOPURINOL [Suspect]
     Indication: DRUG USE FOR UNKNOWN INDICATION
     Dosage: 1 DOSAGE FORMS (1 DOSAGE FORMS,L IN 1 D) 1) ORAL; LONG TERM
     Dates: end: 20081215

REACTIONS (8)
  - DRUG RASH WITH EOSINOPHILIA AND SYSTEMIC SYMPTOMS [None]
  - ERYTHEMA [None]
  - HAEMATURIA [None]
  - OEDEMA PERIPHERAL [None]
  - PROTEINURIA [None]
  - RENAL FAILURE ACUTE [None]
  - SKIN EXFOLIATION [None]
  - TRANSAMINASES INCREASED [None]
